FAERS Safety Report 26007706 (Version 1)
Quarter: 2025Q4

REPORT INFORMATION
  Report Type: Report from Study
  Country: US (occurrence: US)
  Receive Date: 20251106
  Receipt Date: 20251106
  Transmission Date: 20260118
  Serious: Yes (Hospitalization, Other)
  Sender: ABBVIE
  Company Number: US-ABBVIE-6530786

PATIENT
  Age: 84 Year
  Sex: Female

DRUGS (1)
  1. CREON [Suspect]
     Active Substance: PANCRELIPASE AMYLASE\PANCRELIPASE LIPASE\PANCRELIPASE PROTEASE
     Indication: Pancreatic failure
     Route: 048
     Dates: start: 20250312

REACTIONS (4)
  - Fall [Recovering/Resolving]
  - Rib fracture [Recovering/Resolving]
  - Hip fracture [Recovering/Resolving]
  - Pneumothorax [Recovering/Resolving]

NARRATIVE: CASE EVENT DATE: 20250101
